FAERS Safety Report 25966304 (Version 1)
Quarter: 2025Q4

REPORT INFORMATION
  Report Type: Spontaneous
  Country: EU (occurrence: EU)
  Receive Date: 20251028
  Receipt Date: 20251028
  Transmission Date: 20260118
  Serious: Yes (Hospitalization)
  Sender: ASTELLAS
  Company Number: None

PATIENT
  Age: 54 Year
  Sex: Male
  Weight: 104 kg

DRUGS (4)
  1. TACROLIMUS [Suspect]
     Active Substance: TACROLIMUS
     Indication: Prophylaxis against transplant rejection
     Route: 048
     Dates: start: 20250827, end: 20250919
  2. TACROLIMUS [Suspect]
     Active Substance: TACROLIMUS
     Dosage: REDUCED
     Route: 048
  3. PRISTINAMYCIN [Suspect]
     Active Substance: PRISTINAMYCIN
     Indication: Infection
     Dosage: 1G X3/J
     Route: 048
     Dates: start: 20250919, end: 20250924
  4. PRISTINAMYCIN [Suspect]
     Active Substance: PRISTINAMYCIN
     Dosage: 1G X3/J; REDUCED
     Route: 048

REACTIONS (2)
  - Immunosuppressant drug level increased [Recovering/Resolving]
  - Drug interaction [Recovering/Resolving]

NARRATIVE: CASE EVENT DATE: 20250920
